FAERS Safety Report 18135498 (Version 2)
Quarter: 2020Q4

REPORT INFORMATION
  Report Type: Spontaneous
  Country: US (occurrence: US)
  Receive Date: 20200811
  Receipt Date: 20201013
  Transmission Date: 20210113
  Serious: No
  Sender: FDA-Public Use
  Company Number: US-SA-2020SA206930

PATIENT

DRUGS (1)
  1. ALLEGRA ALLERGY [Suspect]
     Active Substance: FEXOFENADINE HYDROCHLORIDE
     Indication: HYPERSENSITIVITY
     Dosage: DRUG STRUCTURE DOSAGE : ONE TABLET DRUG INTERVAL DOSAGE : S NEEDED
     Route: 065

REACTIONS (2)
  - Pruritus [Unknown]
  - Hypersensitivity [Unknown]
